FAERS Safety Report 5324250-5 (Version None)
Quarter: 2007Q2

REPORT INFORMATION
  Report Type: 
  Country: None (occurrence: None)
  Receive Date: 20070514
  Receipt Date: 20070508
  Transmission Date: 20071010
  Serious: Yes (Other)
  Sender: FDA-Public Use
  Company Number: US-ASTRAZENECA-2007UW11087

PATIENT
  Age: 45 Year
  Sex: Female
  Weight: 172.4 kg

DRUGS (18)
  1. CRESTOR [Suspect]
     Indication: DYSLIPIDAEMIA
     Route: 048
     Dates: start: 20070201, end: 20070503
  2. INSULIN [Concomitant]
  3. AVALIDE [Concomitant]
  4. METOPROLOL SUCCINATE [Concomitant]
  5. LASIX [Concomitant]
  6. KEPPRA [Concomitant]
  7. NEXIUM [Concomitant]
  8. COUMADIN [Concomitant]
  9. ERYTHROMYACIN [Concomitant]
  10. TIMOPTIC [Concomitant]
  11. TRAVATAN [Concomitant]
  12. Z OPTIC [Concomitant]
  13. REQUIP [Concomitant]
  14. PROVERA [Concomitant]
  15. LEXAPRO [Concomitant]
  16. MULTIVITAMINS WITH IRON [Concomitant]
  17. FENERGAN [Concomitant]
  18. PERCOCET [Concomitant]

REACTIONS (5)
  - HEPATIC FUNCTION ABNORMAL [None]
  - MYALGIA [None]
  - NON-CARDIAC CHEST PAIN [None]
  - PANCREATIC INSUFFICIENCY [None]
  - PARALYSIS [None]
